FAERS Safety Report 5090258-0 (Version None)
Quarter: 2006Q3

REPORT INFORMATION
  Report Type: 
  Country: None (occurrence: None)
  Receive Date: 20060828
  Receipt Date: 20060627
  Transmission Date: 20061208
  Serious: Yes (Hospitalization)
  Sender: FDA-Public Use
  Company Number: US-GLAXOSMITHKLINE-A0610519A

PATIENT
  Age: 48 Year
  Sex: Female
  Weight: 78.6 kg

DRUGS (7)
  1. WELLBUTRIN XL [Suspect]
     Indication: DEPRESSION
     Dosage: 450MG PER DAY
     Route: 048
     Dates: start: 20040301
  2. LAMICTAL [Concomitant]
     Dosage: 100MG TWICE PER DAY
  3. PROVIGIL [Concomitant]
     Dosage: 200MG PER DAY
  4. ASCORBIC ACID [Concomitant]
  5. GERITOL PLUS IRON [Concomitant]
  6. VITAMIN B-12 [Concomitant]
  7. CALCIUM GLUCONATE [Concomitant]

REACTIONS (7)
  - ACCIDENTAL OVERDOSE [None]
  - ASTHENIA [None]
  - BLOOD PRESSURE INCREASED [None]
  - COORDINATION ABNORMAL [None]
  - HEART RATE INCREASED [None]
  - MUSCLE CONTRACTIONS INVOLUNTARY [None]
  - MUSCLE TWITCHING [None]
